FAERS Safety Report 5189185-X (Version None)
Quarter: 2006Q4

REPORT INFORMATION
  Report Type: 
  Country: None (occurrence: None)
  Receive Date: 20061221
  Receipt Date: 20061011
  Transmission Date: 20070319
  Serious: No
  Sender: FDA-Public Use
  Company Number: US-AMGEN-US196483

PATIENT
  Sex: Female

DRUGS (2)
  1. ENBREL [Suspect]
     Indication: PSORIASIS
     Route: 058
     Dates: start: 20050901, end: 20060801
  2. METHOTREXATE [Concomitant]

REACTIONS (3)
  - CROHN'S DISEASE [None]
  - PERIRECTAL ABSCESS [None]
  - STOMATITIS [None]
